FAERS Safety Report 8023788-X (Version None)
Quarter: 2012Q1

REPORT INFORMATION
  Report Type: 
  Country: None (occurrence: None)
  Receive Date: 20120103
  Receipt Date: 20120103
  Transmission Date: 20120608
  Serious: Yes (Other)
  Sender: FDA-Public Use
  Company Number: None

PATIENT
  Sex: Male
  Weight: 15.4223 kg

DRUGS (1)
  1. LAMOTRIGINE [Suspect]
     Dosage: 75 MG. BID P.O
     Route: 048
     Dates: start: 20100708

REACTIONS (1)
  - CONVULSION [None]
